FAERS Safety Report 6110180-8 (Version None)
Quarter: 2009Q1

REPORT INFORMATION
  Report Type: 
  Country: None (occurrence: None)
  Receive Date: 20090309
  Receipt Date: 20090309
  Transmission Date: 20090719
  Serious: Yes (Other)
  Sender: FDA-Public Use
  Company Number: None

PATIENT
  Sex: Male
  Weight: 74.3899 kg

DRUGS (1)
  1. LIPITOR [Suspect]
     Indication: BLOOD CHOLESTEROL INCREASED
     Dosage: ONE TAB/DAY DAILY PO ABOUT 5 TO 6 MO.
     Route: 048
     Dates: start: 20070701, end: 20071211

REACTIONS (2)
  - ANGINA PECTORIS [None]
  - MYALGIA [None]
